FAERS Safety Report 6478748-7 (Version None)
Quarter: 2009Q4

REPORT INFORMATION
  Report Type: 
  Country: None (occurrence: None)
  Receive Date: 20091202
  Receipt Date: 20091117
  Transmission Date: 20100525
  Serious: Yes (Other)
  Sender: FDA-Public Use
  Company Number: 8055140

PATIENT
  Age: 55 Year
  Sex: Male

DRUGS (2)
  1. KEPPRA [Suspect]
     Indication: CONVULSION
     Dosage: 1500 MG /D PO
     Route: 048
     Dates: start: 20091007
  2. KEPPRA [Suspect]
     Indication: GLIOBLASTOMA
     Dosage: 1500 MG /D PO
     Route: 048
     Dates: start: 20091007

REACTIONS (1)
  - THROMBOCYTOPENIA [None]
